FAERS Safety Report 15793569 (Version 1)
Quarter: 2018Q4

REPORT INFORMATION
  Report Type: Spontaneous
  Country: US (occurrence: US)
  Receive Date: 20181213
  Receipt Date: 20181213
  Transmission Date: 20190205
  Serious: No
  Sender: FDA-Public Use
  Company Number: None

PATIENT
  Age: 65 Year
  Sex: Female

DRUGS (1)
  1. TACROLIMUS CAP 1MG [Suspect]
     Active Substance: TACROLIMUS
     Dates: start: 2008

REACTIONS (3)
  - Hypoaesthesia [None]
  - Neuropathy peripheral [None]
  - Pain in extremity [None]

NARRATIVE: CASE EVENT DATE: 20171201
